FAERS Safety Report 8019438-9 (Version None)
Quarter: 2012Q1

REPORT INFORMATION
  Report Type: 
  Country: None (occurrence: None)
  Receive Date: 20120103
  Receipt Date: 20111227
  Transmission Date: 20120608
  Serious: Yes (Other)
  Sender: FDA-Public Use
  Company Number: PHEH2011US012514

PATIENT
  Sex: Male

DRUGS (3)
  1. VIOXX [Suspect]
     Dosage: UNK UKN, QD
  2. ANTIHYPERTENSIVE DRUGS [Concomitant]
     Dosage: UNK
  3. TEKTURNA [Suspect]
     Dosage: 300 MG, QD

REACTIONS (1)
  - DIABETES MELLITUS [None]
